FAERS Safety Report 7525443-9 (Version None)
Quarter: 2011Q2

REPORT INFORMATION
  Report Type: 
  Country: None (occurrence: None)
  Receive Date: 20110606
  Receipt Date: 20110531
  Transmission Date: 20111010
  Serious: Yes (Life-Threatening, Hospitalization, Disabling, Other)
  Sender: FDA-Public Use
  Company Number: US-ACTELION-A-US2011-43484

PATIENT

DRUGS (3)
  1. TRACLEER [Suspect]
     Indication: PULMONARY ARTERIAL HYPERTENSION
     Dosage: 125 MG, BID
     Route: 048
  2. COUMADIN [Concomitant]
  3. REVATIO [Concomitant]

REACTIONS (7)
  - BIOPSY LIVER [None]
  - FLUID RETENTION [None]
  - ANAEMIA [None]
  - LIVER FUNCTION TEST ABNORMAL [None]
  - COLON CANCER [None]
  - HEPATIC NEOPLASM MALIGNANT [None]
  - PARACENTESIS [None]
